FAERS Safety Report 9076036 (Version 1)
Quarter: 2013Q1

REPORT INFORMATION
  Report Type: Report from Study
  Country: US (occurrence: US)
  Receive Date: 20130129
  Receipt Date: 20130129
  Transmission Date: 20140127
  Serious: No
  Sender: FDA-Public Use
  Company Number: US-ABBOTT-12P-163-0935395-00

PATIENT
  Sex: Female
  Weight: 86.26 kg

DRUGS (11)
  1. HUMIRA 40 MG/0.8 ML PEN [Suspect]
     Indication: PSORIATIC ARTHROPATHY
     Route: 058
     Dates: start: 2009, end: 201202
  2. HUMIRA 40 MG/0.8 ML PEN [Suspect]
     Indication: RHEUMATOID ARTHRITIS
     Dates: start: 201205
  3. METFORMIN [Concomitant]
     Indication: DIABETES MELLITUS
  4. UNIVASC [Concomitant]
     Indication: BLOOD PRESSURE
  5. PROZAC [Concomitant]
     Indication: ANTIDEPRESSANT THERAPY
  6. ATENOLOL [Concomitant]
     Indication: BLOOD PRESSURE
  7. LOSARTAN [Concomitant]
     Indication: BLOOD PRESSURE
  8. LEVOTHYROXINE [Concomitant]
     Indication: HYPOTHYROIDISM
  9. OMEPRAZOLE [Concomitant]
     Indication: GASTROOESOPHAGEAL REFLUX DISEASE
  10. AMITRIPTYLINE [Concomitant]
     Indication: RESTLESS LEGS SYNDROME
  11. CLONIDINE [Concomitant]
     Indication: BLOOD PRESSURE

REACTIONS (1)
  - Herpes zoster [Recovered/Resolved]
